FAERS Safety Report 10048209 (Version 1)
Quarter: 2014Q1

REPORT INFORMATION
  Report Type: Spontaneous
  Country: US (occurrence: US)
  Receive Date: 20140331
  Receipt Date: 20140331
  Transmission Date: 20141002
  Serious: Yes (Disabling)
  Sender: FDA-Public Use
  Company Number: US-GE HEALTHCARE MEDICAL DIAGNOSTICS-OSCN-PR-0902S-0052

PATIENT
  Age: 54 Year
  Sex: Female

DRUGS (20)
  1. OMNISCAN [Suspect]
     Indication: AORTIC VALVE REPLACEMENT
     Route: 042
     Dates: start: 19980601, end: 19980601
  2. OMNISCAN [Suspect]
     Indication: AORTIC DISSECTION
     Route: 042
     Dates: start: 19990514, end: 19990514
  3. OMNISCAN [Suspect]
     Indication: AORTIC DISSECTION
     Route: 042
     Dates: start: 20000418, end: 20000418
  4. OMNISCAN [Suspect]
     Indication: AORTIC DISSECTION
     Route: 042
     Dates: start: 20001019, end: 20001019
  5. OMNISCAN [Suspect]
     Indication: AORTIC DISSECTION
     Route: 042
     Dates: start: 20010720, end: 20010720
  6. OMNISCAN [Suspect]
     Indication: AORTIC DISSECTION
     Route: 042
     Dates: start: 20011016, end: 20011016
  7. OMNISCAN [Suspect]
     Indication: AORTIC DISSECTION
     Route: 042
     Dates: start: 20021101, end: 20021101
  8. OMNISCAN [Suspect]
     Indication: HAEMATOMA
     Route: 042
     Dates: start: 20030927, end: 20030927
  9. OMNISCAN [Suspect]
     Indication: HAEMATOMA
     Route: 042
     Dates: start: 20030930, end: 20030930
  10. OMNISCAN [Suspect]
     Indication: HAEMATOMA
     Route: 042
     Dates: start: 20031003, end: 20031003
  11. OMNISCAN [Suspect]
     Indication: ABDOMINAL PAIN
     Route: 042
     Dates: start: 20031020, end: 20031020
  12. GADOLINIUM (UNSPECIFIED) [Suspect]
     Indication: PRODUCT USED FOR UNKNOWN INDICATION
     Route: 065
     Dates: start: 20000418, end: 20000418
  13. GADOLINIUM (UNSPECIFIED) [Suspect]
     Route: 065
     Dates: start: 20021101, end: 20021101
  14. GADOLINIUM (UNSPECIFIED) [Suspect]
     Route: 065
     Dates: start: 20030927, end: 20030927
  15. GADOLINIUM (UNSPECIFIED) [Suspect]
     Route: 065
     Dates: start: 20030930, end: 20030930
  16. GADOLINIUM (UNSPECIFIED) [Suspect]
     Route: 065
     Dates: start: 20031003, end: 20031003
  17. MAGNEVIST [Suspect]
     Indication: ABDOMINAL PAIN
     Route: 042
     Dates: start: 20030909, end: 20030909
  18. MAGNEVIST [Suspect]
     Indication: HAEMATOMA
     Route: 042
     Dates: start: 20030925, end: 20030925
  19. OMNIPAQUE [Concomitant]
     Indication: PRODUCT USED FOR UNKNOWN INDICATION
     Dates: start: 19911115, end: 19911115
  20. OMNIPAQUE [Concomitant]
     Dates: start: 20010219, end: 20010219

REACTIONS (1)
  - Nephrogenic systemic fibrosis [Not Recovered/Not Resolved]
